FAERS Safety Report 17816664 (Version 2)
Quarter: 2020Q2

REPORT INFORMATION
  Report Type: Spontaneous
  Country: US (occurrence: US)
  Receive Date: 20200522
  Receipt Date: 20200602
  Transmission Date: 20200714
  Serious: No
  Sender: FDA-Public Use
  Company Number: US-VIFOR (INTERNATIONAL) INC.-VIT-2020-05662

PATIENT
  Sex: Male

DRUGS (3)
  1. VELTASSA [Suspect]
     Active Substance: PATIROMER
     Indication: BLOOD POTASSIUM INCREASED
     Route: 048
  2. PROGRAF [Concomitant]
     Active Substance: TACROLIMUS
  3. TESSALON [Concomitant]
     Active Substance: BENZONATATE

REACTIONS (3)
  - Adverse event [Unknown]
  - Diarrhoea [Recovered/Resolved]
  - Blood potassium increased [Unknown]
